FAERS Safety Report 9849889 (Version 1)
Quarter: 2013Q4

REPORT INFORMATION
  Report Type: Spontaneous
  Country: US (occurrence: None)
  Receive Date: 20131226
  Receipt Date: 20131226
  Transmission Date: 20140711
  Serious: Yes (Hospitalization)
  Sender: FDA-Public Use
  Company Number: PHEH2012US024353

PATIENT
  Age: 79 Year
  Sex: Male

DRUGS (2)
  1. ZOMETA (ZOLEDRONATE) UNKNOWN [Suspect]
     Route: 048
  2. REVLIMID (LENALIDOMIDE) [Suspect]
     Indication: PLASMA CELL MYELOMA
     Route: 048
     Dates: start: 20121112, end: 20121119

REACTIONS (1)
  - Renal failure [None]
